FAERS Safety Report 20933532 (Version 1)
Quarter: 2022Q2

REPORT INFORMATION
  Report Type: Spontaneous
  Country: AU (occurrence: AU)
  Receive Date: 20220608
  Receipt Date: 20220608
  Transmission Date: 20220721
  Serious: Yes (Hospitalization, Other)
  Sender: FDA-Public Use
  Company Number: AU-TRIS PHARMA, INC.-22AU010275

PATIENT

DRUGS (6)
  1. NEXICLON XR [Suspect]
     Active Substance: CLONIDINE
     Indication: Product used for unknown indication
     Dosage: UNK
  2. ACETAMINOPHEN [Suspect]
     Active Substance: ACETAMINOPHEN
     Indication: Product used for unknown indication
     Dosage: UNK
  3. ALCOHOL [Suspect]
     Active Substance: ALCOHOL
     Indication: Product used for unknown indication
     Dosage: UNK
  4. FENTANYL [Suspect]
     Active Substance: FENTANYL
     Indication: Endotracheal intubation
  5. THIAMINE [Concomitant]
     Active Substance: THIAMINE
     Indication: Product used for unknown indication
  6. VITAMINS [Concomitant]
     Active Substance: VITAMINS
     Indication: Product used for unknown indication

REACTIONS (12)
  - Acute hepatic failure [Recovered/Resolved]
  - Acute kidney injury [Recovered/Resolved]
  - Liver injury [Recovered/Resolved]
  - Colitis [Recovered/Resolved]
  - International normalised ratio increased [Recovered/Resolved]
  - Encephalopathy [Recovered/Resolved]
  - Hepatotoxicity [Recovered/Resolved]
  - Toxicity to various agents [Recovered/Resolved]
  - Coma [Recovered/Resolved]
  - Hypotension [Recovered/Resolved]
  - Bradycardia [Recovered/Resolved]
  - Overdose [Recovered/Resolved]
